FAERS Safety Report 10283797 (Version 1)
Quarter: 2014Q3

REPORT INFORMATION
  Report Type: Spontaneous
  Country: US (occurrence: None)
  Receive Date: 20140702
  Receipt Date: 20140702
  Transmission Date: 20150326
  Serious: No
  Sender: FDA-Public Use
  Company Number: None

PATIENT
  Age: 39 Year
  Sex: Male
  Weight: 82.7 kg

DRUGS (1)
  1. DROSPIRENONE/ETHINYL ESTRADIOL [Suspect]
     Active Substance: DROSPIRENONE\ETHINYL ESTRADIOL
     Dosage: 1 TAB  EVERY DAY  PO
     Route: 048
     Dates: start: 20120702, end: 20131214

REACTIONS (4)
  - Nausea [None]
  - Fatigue [None]
  - Vomiting [None]
  - Product substitution issue [None]

NARRATIVE: CASE EVENT DATE: 20130208
